FAERS Safety Report 4530358-4 (Version None)
Quarter: 2004Q4

REPORT INFORMATION
  Report Type: 
  Country: None (occurrence: None)
  Receive Date: 20041215
  Receipt Date: 20041206
  Transmission Date: 20050328
  Serious: Yes (Hospitalization)
  Sender: FDA-Public Use
  Company Number: 2004104815

PATIENT
  Age: 81 Year
  Sex: Female

DRUGS (4)
  1. ACUILIX (HYDROCHLOROTHIAZIDE, QUINAPRIL) [Suspect]
     Indication: ILL-DEFINED DISORDER
     Dosage: ORAL
     Route: 048
     Dates: end: 20040913
  2. BEZAFIBRATE (BEZAFIBRATE) [Concomitant]
  3. ZOLPIDEM TARTRATE [Concomitant]
  4. ALLOPURINOL [Concomitant]

REACTIONS (2)
  - CONFUSIONAL STATE [None]
  - HYPONATRAEMIA [None]
